FAERS Safety Report 8524825-6 (Version None)
Quarter: 2012Q3

REPORT INFORMATION
  Report Type: 
  Country: None (occurrence: None)
  Receive Date: 20120720
  Receipt Date: 20120718
  Transmission Date: 20120928
  Serious: Yes (Hospitalization)
  Sender: FDA-Public Use
  Company Number: IT-GLAXOSMITHKLINE-B0815846A

PATIENT
  Sex: Female

DRUGS (3)
  1. VELCADE [Suspect]
     Indication: MULTIPLE MYELOMA
     Dosage: 1.9MG PER DAY
     Route: 042
     Dates: start: 20110601, end: 20111102
  2. PREDNISONE TAB [Suspect]
     Indication: MULTIPLE MYELOMA
     Dosage: 25MG PER DAY
     Route: 048
     Dates: start: 20110601, end: 20111102
  3. ALKERAN [Suspect]
     Indication: MULTIPLE MYELOMA
     Dosage: 6.5MG PER DAY
     Route: 042
     Dates: start: 20110601, end: 20111102

REACTIONS (1)
  - CARDIAC FAILURE [None]
